FAERS Safety Report 8907498 (Version 2)
Quarter: 2013Q1

REPORT INFORMATION
  Report Type: Report from Study
  Country: DE (occurrence: DE)
  Receive Date: 20121114
  Receipt Date: 20130128
  Transmission Date: 20140127
  Serious: Yes (Hospitalization)
  Sender: FDA-Public Use
  Company Number: DE-BIOGENIDEC-2012BI051863

PATIENT
  Age: 40 Year
  Sex: Male

DRUGS (2)
  1. TYSABRI [Suspect]
     Indication: MULTIPLE SCLEROSIS
     Route: 042
     Dates: start: 20080424
  2. TIMONIL [Concomitant]
     Indication: EPILEPSY
     Route: 048
     Dates: start: 2003

REACTIONS (1)
  - Grand mal convulsion [Recovered/Resolved]
